FAERS Safety Report 4779035-5 (Version None)
Quarter: 2005Q3

REPORT INFORMATION
  Report Type: 
  Country: None (occurrence: None)
  Receive Date: 20050923
  Receipt Date: 20050915
  Transmission Date: 20060218
  Serious: Yes (Other)
  Sender: FDA-Public Use
  Company Number: 217768

PATIENT
  Age: 48 Year
  Sex: Female

DRUGS (5)
  1. RITUXAN [Suspect]
     Indication: NON-HODGKIN'S LYMPHOMA
     Dosage: 525 MG, INTRAVENOUS
     Route: 042
     Dates: start: 20011031, end: 20011121
  2. METHOTREXATE [Suspect]
     Indication: LYMPHOMA
     Dosage: 2.6 G, INTRAVENOUS
     Route: 042
     Dates: start: 20020104, end: 20020104
  3. POLARAMINE [Concomitant]
  4. METILON (DIPYRONE) [Concomitant]
  5. MORPHINE [Concomitant]

REACTIONS (8)
  - C-REACTIVE PROTEIN INCREASED [None]
  - CHILLS [None]
  - LYMPHOMA [None]
  - MULTI-ORGAN FAILURE [None]
  - NEOPLASM RECURRENCE [None]
  - PANCYTOPENIA [None]
  - PYREXIA [None]
  - TACHYCARDIA [None]
